FAERS Safety Report 23065271 (Version 1)
Quarter: 2023Q4

REPORT INFORMATION
  Report Type: Spontaneous
  Country: CA (occurrence: CA)
  Receive Date: 20231013
  Receipt Date: 20231013
  Transmission Date: 20240110
  Serious: Yes (Life-Threatening, Other)
  Sender: FDA-Public Use
  Company Number: CA-FreseniusKabi-FK202316311

PATIENT
  Age: 34 Year
  Sex: Male
  Weight: 146 kg

DRUGS (4)
  1. VANCOMYCIN HYDROCHLORIDE [Suspect]
     Active Substance: VANCOMYCIN HYDROCHLORIDE
     Indication: Staphylococcal infection
     Dosage: VANCOMYCIN HYDROCHLORIDE FOR INJECTION USP?DOSAGE FORM: POWDER FOR SOLUTION INTRAVENOUS?FREQUENCY: O
     Route: 042
  2. VANCOMYCIN HYDROCHLORIDE [Suspect]
     Active Substance: VANCOMYCIN HYDROCHLORIDE
     Indication: Product used for unknown indication
     Dosage: VANCOMYCIN HYDROCHLORIDE FOR INJECTION, USP 10 ML SINGLE-DOSE VIALS?DOSAGE FORM: POWDER FOR SOLUTION
     Route: 042
  3. VANCOMYCIN HYDROCHLORIDE [Suspect]
     Active Substance: VANCOMYCIN HYDROCHLORIDE
     Dosage: VANCOMYCIN HYDROCHLORIDE FOR INJECTION, USP  SINGLE-DOSE VIAL FOR IV INFUSION ONLY?DOSAGE FORM: POWD
     Route: 042
  4. VANCOMYCIN HYDROCHLORIDE [Suspect]
     Active Substance: VANCOMYCIN HYDROCHLORIDE
     Dosage: VANCOMYCIN HYDROCHLORIDE FOR INJECTION, USP SINGLE USE VILE?DOSAGE FORM: POWDER FOR SOLUTION INTRAVE
     Route: 042

REACTIONS (3)
  - Angioedema [Recovered/Resolved]
  - Hypersensitivity [Recovered/Resolved]
  - Laryngospasm [Recovered/Resolved]
